FAERS Safety Report 8464915-X (Version None)
Quarter: 2012Q2

REPORT INFORMATION
  Report Type: 
  Country: None (occurrence: None)
  Receive Date: 20120323
  Receipt Date: 20111130
  Transmission Date: 20120825
  Serious: Yes (Hospitalization, Other)
  Sender: FDA-Public Use
  Company Number: 163-21880-11093446

PATIENT
  Age: 64 Year
  Sex: Female

DRUGS (2)
  1. REVLIMID [Suspect]
     Indication: WALDENSTROM'S MACROGLOBULINAEMIA
     Dosage: 25 MG, DAILY, 3WKS ON, 1WK OFF, PO
     Route: 048
     Dates: start: 20100215, end: 20100323
  2. DECADRON [Concomitant]

REACTIONS (4)
  - FEBRILE NEUTROPENIA [None]
  - ATRIAL FIBRILLATION [None]
  - INFECTION [None]
  - FATIGUE [None]
